FAERS Safety Report 8369644-9 (Version None)
Quarter: 2012Q2

REPORT INFORMATION
  Report Type: 
  Country: None (occurrence: None)
  Receive Date: 20120518
  Receipt Date: 20120503
  Transmission Date: 20120825
  Serious: Yes (Death, Hospitalization, Other)
  Sender: FDA-Public Use
  Company Number: US-MYLANLABS-2009AL001304

PATIENT
  Age: 84 Year
  Sex: Female
  Weight: 80.29 kg

DRUGS (26)
  1. PEPCID [Concomitant]
  2. LANTUS [Concomitant]
  3. PRIMAXIN [Concomitant]
     Dosage: FOR 9 DAYS
  4. COUMADIN [Concomitant]
  5. ZOCOR [Concomitant]
  6. VANCOMYCIN [Concomitant]
     Dosage: 1 GM IV PIGGYBACK EVERY 24 HOURS X 9 DAYS
     Route: 042
  7. RISPERDAL [Concomitant]
  8. PROZAC [Concomitant]
  9. PREMARIN [Concomitant]
  10. CIPROFLOXACIN [Concomitant]
  11. FERROUS SULFATE TAB [Concomitant]
  12. NEURONTIN [Concomitant]
  13. ALDACTONE [Concomitant]
  14. LASIX [Concomitant]
  15. LORAZEPAM [Concomitant]
  16. PREVACID [Concomitant]
  17. MORPHINE SULFATE [Concomitant]
     Dosage: PER G-TUBE PRN
  18. DIGOXIN [Suspect]
     Indication: HEART RATE IRREGULAR
     Route: 048
     Dates: start: 20070613, end: 20070801
  19. PREDNISONE [Concomitant]
  20. LIPITOR [Concomitant]
  21. LISINOPRIL [Concomitant]
  22. NYSTATIN [Concomitant]
     Dosage: POWDER TO THE PERINEAL AREA BID
     Route: 061
  23. INSULIN [Concomitant]
  24. SYNTHROID [Concomitant]
  25. ZANTAC [Concomitant]
  26. ZOSYN [Concomitant]

REACTIONS (62)
  - PAIN [None]
  - ECONOMIC PROBLEM [None]
  - ADRENAL INSUFFICIENCY [None]
  - ASTHENIA [None]
  - ANHEDONIA [None]
  - INJURY [None]
  - BLOOD PRESSURE DECREASED [None]
  - VISION BLURRED [None]
  - CARDIOMYOPATHY [None]
  - AGGRESSION [None]
  - HEART RATE IRREGULAR [None]
  - INSULIN-REQUIRING TYPE 2 DIABETES MELLITUS [None]
  - SLEEP PHASE RHYTHM DISTURBANCE [None]
  - X-RAY ABNORMAL [None]
  - CARDIAC DISORDER [None]
  - MITRAL VALVE INCOMPETENCE [None]
  - CARDIAC MURMUR [None]
  - HYPONATRAEMIA [None]
  - MENTAL STATUS CHANGES [None]
  - OSTEOARTHRITIS [None]
  - BRADYCARDIA [None]
  - DYSPNOEA [None]
  - PYREXIA [None]
  - LEFT VENTRICULAR HYPERTROPHY [None]
  - CENTRAL VENOUS CATHETERISATION [None]
  - DECREASED ACTIVITY [None]
  - MASTOIDITIS [None]
  - DIZZINESS [None]
  - CATARACT [None]
  - PULMONARY OEDEMA [None]
  - ABDOMINAL PAIN [None]
  - BONE SCAN ABNORMAL [None]
  - LETHARGY [None]
  - LUNG INFILTRATION [None]
  - DEATH [None]
  - MENTAL IMPAIRMENT [None]
  - CARDIAC FAILURE CONGESTIVE [None]
  - BLEPHARITIS [None]
  - CARDIOMEGALY [None]
  - COMPUTERISED TOMOGRAM ABNORMAL [None]
  - CRYING [None]
  - DECUBITUS ULCER [None]
  - DISORIENTATION [None]
  - ECHOCARDIOGRAM ABNORMAL [None]
  - OTITIS MEDIA [None]
  - EMOTIONAL DISTRESS [None]
  - ILL-DEFINED DISORDER [None]
  - CONFUSIONAL STATE [None]
  - DELIRIUM [None]
  - UROSEPSIS [None]
  - BREATH SOUNDS ABNORMAL [None]
  - CEREBRAL ATROPHY [None]
  - HYPERGLYCAEMIA [None]
  - HYPERKALAEMIA [None]
  - PURULENT DISCHARGE [None]
  - URINARY TRACT INFECTION [None]
  - OEDEMA PERIPHERAL [None]
  - SEPSIS [None]
  - DEBRIDEMENT [None]
  - FUNGAL INFECTION [None]
  - OSTEOPOROSIS [None]
  - URINE OUTPUT DECREASED [None]
